FAERS Safety Report 20442164 (Version 1)
Quarter: 2022Q1

REPORT INFORMATION
  Report Type: Spontaneous
  Country: US (occurrence: US)
  Receive Date: 20220208
  Receipt Date: 20220208
  Transmission Date: 20220424
  Serious: No
  Sender: FDA-Public Use
  Company Number: US-GLENMARK PHARMACEUTICALS-2021GMK067466

PATIENT

DRUGS (1)
  1. MUPIROCIN [Suspect]
     Active Substance: MUPIROCIN
     Indication: Staphylococcal infection
     Dosage: UNK, BID
     Route: 045
     Dates: start: 20210816, end: 20210817

REACTIONS (5)
  - Sneezing [Unknown]
  - Rhinorrhoea [Not Recovered/Not Resolved]
  - Product dispensing error [Unknown]
  - Product administered at inappropriate site [Unknown]
  - Nasal pruritus [Recovered/Resolved]

NARRATIVE: CASE EVENT DATE: 20210816
